FAERS Safety Report 9957229 (Version 1)
Quarter: 2014Q1

REPORT INFORMATION
  Report Type: Report from Study
  Country: US (occurrence: US)
  Receive Date: 20140304
  Receipt Date: 20140304
  Transmission Date: 20141002
  Serious: No
  Sender: FDA-Public Use
  Company Number: US-ABBVIE-13P-163-1097836-00

PATIENT
  Sex: Female

DRUGS (5)
  1. HUMIRA [Suspect]
     Indication: RHEUMATOID ARTHRITIS
     Dates: start: 2008
  2. HUMIRA [Suspect]
  3. NAPROXYN [Concomitant]
     Indication: MIGRAINE
  4. VITAMINS [Concomitant]
     Indication: PRODUCT USED FOR UNKNOWN INDICATION
  5. SUPPLEMENTS [Concomitant]
     Indication: PRODUCT USED FOR UNKNOWN INDICATION

REACTIONS (6)
  - Gait disturbance [Recovering/Resolving]
  - Injection site pain [Recovering/Resolving]
  - Malaise [Recovering/Resolving]
  - Arthralgia [Recovering/Resolving]
  - Contusion [Recovering/Resolving]
  - Local swelling [Recovering/Resolving]
